FAERS Safety Report 19057707 (Version 6)
Quarter: 2023Q4

REPORT INFORMATION
  Report Type: Spontaneous
  Country: US (occurrence: US)
  Receive Date: 20210325
  Receipt Date: 20231105
  Transmission Date: 20240109
  Serious: Yes (Other)
  Sender: FDA-Public Use
  Company Number: US-PFIZER INC-2021318252

PATIENT
  Age: 84 Year
  Sex: Female

DRUGS (3)
  1. IBRANCE [Suspect]
     Active Substance: PALBOCICLIB
     Dosage: 125 MG
  2. IBRANCE [Suspect]
     Active Substance: PALBOCICLIB
     Dosage: TAKE ONE TABLET (100 MG) 21 DAYS IN A ROW FOLLOWED BY 7 DAYS OFF
     Route: 048
     Dates: start: 20221201
  3. IBRANCE [Suspect]
     Active Substance: PALBOCICLIB
     Dosage: 100 MG

REACTIONS (5)
  - Second primary malignancy [Unknown]
  - Skin cancer [Unknown]
  - Polyneuropathy [Unknown]
  - Stress [Unknown]
  - Visual impairment [Unknown]
